FAERS Safety Report 10659495 (Version 2)
Quarter: 2014Q4

REPORT INFORMATION
  Report Type: Report from Study
  Country: ES (occurrence: ES)
  Receive Date: 20141217
  Receipt Date: 20141217
  Transmission Date: 20150529
  Serious: Yes (Hospitalization)
  Sender: FDA-Public Use
  Company Number: ES-B.I. PHARMACEUTICALS,INC./RIDGEFIELD-2014-BI-40079BI

PATIENT
  Age: 81 Year
  Sex: Female
  Weight: 52.5 kg

DRUGS (28)
  1. ACICLOVIR [Concomitant]
     Active Substance: ACYCLOVIR
     Dosage: 800 MG
     Route: 048
  2. AZTREONAM. [Concomitant]
     Active Substance: AZTREONAM
     Dosage: 8 G
     Route: 042
     Dates: start: 20141209
  3. LORAZEPAM. [Concomitant]
     Active Substance: LORAZEPAM
     Indication: ANXIETY
     Dosage: 1 MG
     Route: 048
  4. CIPROFLOXACIN. [Concomitant]
     Active Substance: CIPROFLOXACIN
     Indication: ANTIBIOTIC THERAPY
     Dosage: 1000 MG
     Route: 048
  5. ACICLOVIR [Concomitant]
     Active Substance: ACYCLOVIR
     Indication: ANTIVIRAL TREATMENT
     Dosage: 800 MG
     Route: 048
     Dates: end: 20141007
  6. COLISTINA [Concomitant]
     Dosage: 9 MU
     Route: 065
     Dates: start: 20141110, end: 20141116
  7. MEROPENEM. [Concomitant]
     Active Substance: MEROPENEM
     Dosage: 3 G
     Route: 042
     Dates: start: 20141209
  8. BI 6727 [Suspect]
     Active Substance: UNSPECIFIED INGREDIENT
     Indication: ACUTE MYELOID LEUKAEMIA
     Route: 065
  9. POSACONAZOL [Concomitant]
     Active Substance: POSACONAZOLE
     Indication: ANTIFUNGAL TREATMENT
     Dosage: 600 MG
     Route: 048
  10. PARACETAMOL [Concomitant]
     Active Substance: ACETAMINOPHEN
     Indication: ANALGESIC THERAPY
     Dosage: 1 G
     Route: 048
  11. PARACETAMOL [Concomitant]
     Active Substance: ACETAMINOPHEN
     Dosage: 3 G
     Route: 048
     Dates: end: 20141007
  12. PARACETAMOL [Concomitant]
     Active Substance: ACETAMINOPHEN
     Dosage: 3 G
     Route: 048
  13. AMLODIPINE [Concomitant]
     Active Substance: AMLODIPINE BESYLATE
     Indication: HYPERTENSION
     Dosage: 5 MG
     Route: 048
  14. COLISTINA [Concomitant]
     Dosage: 9 MU
     Route: 042
     Dates: start: 20141209
  15. OMEPRAZOL [Concomitant]
     Active Substance: OMEPRAZOLE
     Indication: PROPHYLAXIS
     Dosage: 40 MG
     Route: 048
  16. CANDESARTAN [Concomitant]
     Active Substance: CANDESARTAN
     Indication: HYPERTENSION
     Dosage: 16 MG
     Route: 048
  17. MEROPENEM. [Concomitant]
     Active Substance: MEROPENEM
     Indication: ANTIBIOTIC THERAPY
     Dosage: 3 G
     Route: 042
     Dates: start: 20140914
  18. AZTREONAM. [Concomitant]
     Active Substance: AZTREONAM
     Dosage: 8 G
     Route: 065
     Dates: start: 20141110, end: 20141116
  19. PRIMPERAM [Concomitant]
     Indication: VOMITING
  20. ESOMEPRAZOL [Concomitant]
     Active Substance: ESOMEPRAZOLE
     Indication: PROPHYLAXIS
     Dosage: 80 MG
     Route: 048
  21. PRIMPERAM [Concomitant]
     Indication: NAUSEA
     Dosage: 30 MG
     Route: 048
  22. POSACONAZOL [Concomitant]
     Active Substance: POSACONAZOLE
     Dosage: 15 ML
     Route: 048
  23. COLISTINA [Concomitant]
     Indication: ANTIBIOTIC THERAPY
     Dosage: 9 MU
     Route: 042
     Dates: start: 20140914
  24. AZTREONAM. [Concomitant]
     Active Substance: AZTREONAM
     Indication: ANTIBIOTIC THERAPY
     Dosage: 8 G
     Route: 042
     Dates: start: 20140914
  25. POSACONAZOL [Concomitant]
     Active Substance: POSACONAZOLE
     Dosage: 15 ML
     Route: 048
     Dates: end: 20141007
  26. METFORMIN [Concomitant]
     Active Substance: METFORMIN HYDROCHLORIDE
     Indication: DIABETES MELLITUS
     Dosage: 1700 MG
     Route: 048
  27. SIMVASTATINA [Concomitant]
     Active Substance: SIMVASTATIN
     Indication: DYSLIPIDAEMIA
     Dosage: 20 MG
     Route: 048
  28. MEROPENEM. [Concomitant]
     Active Substance: MEROPENEM
     Dosage: 3 G
     Route: 042
     Dates: start: 20141110

REACTIONS (5)
  - Febrile neutropenia [Unknown]
  - Liver function test abnormal [Recovered/Resolved]
  - Febrile neutropenia [Not Recovered/Not Resolved]
  - Febrile neutropenia [Recovered/Resolved]
  - Febrile neutropenia [Recovered/Resolved]

NARRATIVE: CASE EVENT DATE: 20140827
